FAERS Safety Report 5046473-5 (Version None)
Quarter: 2006Q3

REPORT INFORMATION
  Report Type: 
  Country: None (occurrence: None)
  Receive Date: 20060710
  Receipt Date: 20060629
  Transmission Date: 20061208
  Serious: Yes (Other)
  Sender: FDA-Public Use
  Company Number: US-ROCHE-453661

PATIENT
  Age: 20 Year
  Sex: Female

DRUGS (3)
  1. PEGASYS [Suspect]
     Route: 065
     Dates: start: 20060515
  2. COPEGUS [Suspect]
     Route: 065
     Dates: start: 20060515
  3. ANTIBIOTIC NOS [Concomitant]
     Indication: ACNE

REACTIONS (2)
  - OCULAR ICTERUS [None]
  - YELLOW SKIN [None]
